FAERS Safety Report 8444702-9 (Version None)
Quarter: 2012Q2

REPORT INFORMATION
  Report Type: 
  Country: None (occurrence: None)
  Receive Date: 20120618
  Receipt Date: 20120611
  Transmission Date: 20120825
  Serious: Yes (Other)
  Sender: FDA-Public Use
  Company Number: US-GENZYME-CAMP-1002193

PATIENT
  Sex: Female
  Weight: 57.596 kg

DRUGS (7)
  1. ALEMTUZUMAB [Suspect]
     Indication: MULTIPLE SCLEROSIS
     Dosage: 12 MG, QD
     Route: 042
     Dates: start: 20110705, end: 20110708
  2. ALEMTUZUMAB [Suspect]
     Dosage: 12 MG, QD
     Route: 042
     Dates: start: 20110711, end: 20110711
  3. REBIF [Concomitant]
     Dosage: 22 MCG, TIW
     Dates: start: 20090615, end: 20090627
  4. METHYLPREDNISOLONE [Concomitant]
     Indication: PRODUCT USED FOR UNKNOWN INDICATION
     Dosage: 1 G, QD
     Route: 042
     Dates: start: 20110705, end: 20110707
  5. REBIF [Concomitant]
     Dosage: 44 MCG, TIW
     Dates: start: 20090629, end: 20110606
  6. REBIF [Concomitant]
     Indication: PRODUCT USED FOR UNKNOWN INDICATION
     Dosage: 8.8 MCG, TIW
     Dates: start: 20090601, end: 20090613
  7. HYDROCODONE BITARTRATE [Concomitant]
     Indication: PAIN
     Dosage: 7.5 MG, Q4HR

REACTIONS (2)
  - BREAST CANCER FEMALE [None]
  - BREAST CANCER [None]
